FAERS Safety Report 5339370-9 (Version None)
Quarter: 2007Q2

REPORT INFORMATION
  Report Type: 
  Country: None (occurrence: None)
  Receive Date: 20070322
  Receipt Date: 20061004
  Transmission Date: 20071010
  Serious: Yes (Other)
  Sender: FDA-Public Use
  Company Number: 200613606BCC

PATIENT
  Age: 60 Year
  Sex: Female
  Weight: 141.5223 kg

DRUGS (5)
  1. ALEVE (CAPLET) [Suspect]
     Indication: PAIN IN EXTREMITY
     Dosage: 440 MG, ONCE; ORAL
     Route: 048
     Dates: start: 20050401
  2. GLUCOPHAGE [Concomitant]
  3. PREVACID [Concomitant]
  4. TUMS (CALCIUM CARBONATE) [Concomitant]
  5. 2 HITS OF MARIJUANA [Concomitant]

REACTIONS (4)
  - ANAPHYLACTIC SHOCK [None]
  - HYPOTENSION [None]
  - PRURITUS [None]
  - RASH [None]
